FAERS Safety Report 5248313-8 (Version None)
Quarter: 2007Q1

REPORT INFORMATION
  Report Type: 
  Country: None (occurrence: None)
  Receive Date: 20070227
  Receipt Date: 20070212
  Transmission Date: 20070707
  Serious: Yes (Hospitalization)
  Sender: FDA-Public Use
  Company Number: US-SHR-US-2007-001023

PATIENT
  Age: 57 Year
  Sex: Male
  Weight: 116 kg

DRUGS (5)
  1. BETASERON [Suspect]
     Indication: RELAPSING-REMITTING MULTIPLE SCLEROSIS
     Dosage: 8 MIU, EVERY 2D
     Route: 058
     Dates: start: 20021217
  2. BETASERON [Suspect]
     Route: 058
     Dates: start: 20061212
  3. BETASERON [Suspect]
     Dosage: UNK, EVERY 2D
     Route: 058
     Dates: start: 20070108
  4. NEURONTIN [Concomitant]
     Dosage: 400 MG, 3X/DAY
  5. NEURONTIN [Concomitant]
     Dosage: 800 MG, 3X/DAY

REACTIONS (3)
  - CHILLS [None]
  - PYREXIA [None]
  - TREMOR [None]
